FAERS Safety Report 6405150-6 (Version None)
Quarter: 2009Q4

REPORT INFORMATION
  Report Type: 
  Country: None (occurrence: None)
  Receive Date: 20091019
  Receipt Date: 20091008
  Transmission Date: 20100525
  Serious: Yes (Hospitalization)
  Sender: FDA-Public Use
  Company Number: CH-ASTRAZENECA-2009SE19268

PATIENT
  Age: 60 Year
  Sex: Female
  Weight: 56 kg

DRUGS (6)
  1. SEROQUEL [Suspect]
     Route: 048
     Dates: end: 20090909
  2. ZYPREXA [Suspect]
     Route: 048
     Dates: start: 20090910, end: 20090910
  3. ZYPREXA [Suspect]
     Route: 048
     Dates: start: 20090911
  4. CYMBALTA [Suspect]
     Route: 048
     Dates: start: 20090813
  5. REMERON [Suspect]
     Route: 048
     Dates: start: 20090901
  6. TEMESTA [Suspect]
     Route: 048

REACTIONS (1)
  - FEMORAL NECK FRACTURE [None]
